FAERS Safety Report 4790109-5 (Version None)
Quarter: 2005Q4

REPORT INFORMATION
  Report Type: 
  Country: None (occurrence: None)
  Receive Date: 20051006
  Receipt Date: 20050927
  Transmission Date: 20060501
  Serious: Yes (Other)
  Sender: FDA-Public Use
  Company Number: NO-ROCHE-419205

PATIENT
  Age: 55 Year
  Sex: Male

DRUGS (3)
  1. CLONAZEPAM [Suspect]
     Indication: ANXIETY
     Dosage: DOSAGE REPORTED AS UP TO 2 MG DAILY.
     Route: 048
     Dates: start: 19910615, end: 20010615
  2. CLONAZEPAM [Suspect]
     Route: 048
     Dates: start: 20010615, end: 20040615
  3. CLONAZEPAM [Suspect]
     Route: 048
     Dates: start: 20040615

REACTIONS (4)
  - ARTHRALGIA [None]
  - MUSCLE SPASMS [None]
  - MUSCLE TIGHTNESS [None]
  - MYALGIA [None]
